FAERS Safety Report 15150888 (Version 3)
Quarter: 2018Q4

REPORT INFORMATION
  Report Type: Spontaneous
  Country: US (occurrence: US)
  Receive Date: 20180716
  Receipt Date: 20181228
  Transmission Date: 20190204
  Serious: Yes (Other)
  Sender: FDA-Public Use
  Company Number: US-SA-2018SA092198

PATIENT
  Age: 34 Year
  Sex: Female
  Weight: 45.35 kg

DRUGS (5)
  1. CEPHALEXINE [Concomitant]
     Active Substance: CEPHALEXIN
  2. TAXOTERE [Suspect]
     Active Substance: DOCETAXEL
     Indication: BREAST CANCER
     Dosage: UNK UNK, Q3W
     Route: 042
     Dates: start: 20100913, end: 20100913
  3. PARAPLATIN [Concomitant]
     Active Substance: CARBOPLATIN
  4. OXYCODONE [Concomitant]
     Active Substance: OXYCODONE
  5. TAXOTERE [Suspect]
     Active Substance: DOCETAXEL
     Dosage: UNK UNK, Q3W
     Route: 042
     Dates: start: 20101227, end: 20101227

REACTIONS (2)
  - Psychological trauma [Unknown]
  - Alopecia [Recovering/Resolving]

NARRATIVE: CASE EVENT DATE: 201104
